FAERS Safety Report 4696327-9 (Version None)
Quarter: 2005Q2

REPORT INFORMATION
  Report Type: 
  Country: None (occurrence: None)
  Receive Date: 20050620
  Receipt Date: 20050606
  Transmission Date: 20051028
  Serious: Yes (Hospitalization, Other)
  Sender: FDA-Public Use
  Company Number: 2005085241

PATIENT
  Age: 41 Year
  Sex: Male

DRUGS (7)
  1. CAVERJECT [Suspect]
     Indication: ERECTILE DYSFUNCTION
  2. VIAGRA [Suspect]
     Indication: ILL-DEFINED DISORDER
     Dates: start: 20030101
  3. CELLCEPT [Concomitant]
  4. PROGRAF [Concomitant]
  5. METOPROLOL TARTRATE [Concomitant]
  6. BACTRIM [Concomitant]
  7. EFFEXOR [Concomitant]

REACTIONS (14)
  - ABDOMINAL DISTENSION [None]
  - ASTHENIA [None]
  - BLOOD CHOLESTEROL INCREASED [None]
  - BLOOD GLUCOSE INCREASED [None]
  - DEPRESSION [None]
  - DIALYSIS [None]
  - DRUG INEFFECTIVE [None]
  - FEELING HOT [None]
  - GENITAL BURNING SENSATION [None]
  - HYPERTENSION [None]
  - NEUROPATHY [None]
  - POST PROCEDURAL COMPLICATION [None]
  - RENAL TRANSPLANT [None]
  - WEIGHT INCREASED [None]
